FAERS Safety Report 4433332-1 (Version None)
Quarter: 2004Q3

REPORT INFORMATION
  Report Type: 
  Country: None (occurrence: None)
  Receive Date: 20040824
  Receipt Date: 20040809
  Transmission Date: 20050211
  Serious: Yes (Hospitalization)
  Sender: FDA-Public Use
  Company Number: B0342285A

PATIENT
  Age: 17 Month
  Sex: Female

DRUGS (1)
  1. FORTAZ [Suspect]
     Indication: SYSTEMIC ANTIBACTERIAL THERAPY
     Dosage: INTRAVENOUS
     Route: 042

REACTIONS (5)
  - ANAEMIA [None]
  - RESPIRATORY FAILURE [None]
  - STAPHYLOCOCCAL BACTERAEMIA [None]
  - TOXIC EPIDERMAL NECROLYSIS [None]
  - UPPER RESPIRATORY TRACT INFECTION [None]
